FAERS Safety Report 4565559-2 (Version None)
Quarter: 2005Q1

REPORT INFORMATION
  Report Type: 
  Country: None (occurrence: None)
  Receive Date: 20050125
  Receipt Date: 20050125
  Transmission Date: 20050727
  Serious: Yes (Other)
  Sender: FDA-Public Use
  Company Number: None

PATIENT
  Sex: Female
  Weight: 71.6683 kg

DRUGS (4)
  1. BENICAR [Suspect]
     Indication: HYPERTENSION
     Dates: start: 20041223, end: 20050103
  2. ADVAIR DISKUS 100/50 [Concomitant]
  3. EFFEXOR XR [Concomitant]
  4. PROTONIX [Concomitant]

REACTIONS (1)
  - COUGH [None]
